FAERS Safety Report 11952299 (Version 1)
Quarter: 2016Q1

REPORT INFORMATION
  Report Type: Other
  Country: JP (occurrence: JP)
  Receive Date: 20160126
  Receipt Date: 20160126
  Transmission Date: 20160526
  Serious: Yes (Other)
  Sender: FDA-Public Use
  Company Number: JP-ACTELION-A-CH2016-130418

PATIENT
  Age: 21 Year
  Sex: Female
  Weight: 39.6 kg

DRUGS (4)
  1. TRACLEER [Suspect]
     Active Substance: BOSENTAN
     Indication: PULMONARY ARTERIAL HYPERTENSION
     Route: 048
  2. OXYGEN. [Concomitant]
     Active Substance: OXYGEN
  3. SILDENAFIL. [Concomitant]
     Active Substance: SILDENAFIL
  4. PROSTACYCLIN [Concomitant]
     Active Substance: EPOPROSTENOL

REACTIONS (5)
  - Left atrial dilatation [Unknown]
  - Pulmonary oedema [Unknown]
  - Haemorrhage [Unknown]
  - Left ventricular failure [Unknown]
  - Transplant dysfunction [Unknown]
